FAERS Safety Report 17178827 (Version 1)
Quarter: 2019Q4

REPORT INFORMATION
  Report Type: Spontaneous
  Country: CA (occurrence: CA)
  Receive Date: 20191219
  Receipt Date: 20191219
  Transmission Date: 20200122
  Serious: Yes (Other)
  Sender: FDA-Public Use
  Company Number: CA-ASTRAZENECA-2019SF82634

PATIENT
  Age: 54 Year
  Sex: Female
  Weight: 88 kg

DRUGS (2)
  1. CRESTOR [Suspect]
     Active Substance: ROSUVASTATIN CALCIUM
     Indication: CEREBROVASCULAR ACCIDENT PROPHYLAXIS
     Route: 048
  2. SAXENDA [Concomitant]
     Active Substance: LIRAGLUTIDE
     Dosage: 3MLMULTIDOSE PREFILLED PEN. EACH PEN DELIVERS DOSES OF 0.6MG, 1.2MG, 1.8MG 2.4MG AND 3MG
     Route: 058

REACTIONS (6)
  - Malaise [Unknown]
  - Swelling [Unknown]
  - Hypersensitivity [Unknown]
  - Chills [Unknown]
  - Glossodynia [Unknown]
  - Throat tightness [Unknown]
